FAERS Safety Report 9140472 (Version 1)
Quarter: 2013Q1

REPORT INFORMATION
  Report Type: Spontaneous
  Country: US (occurrence: US)
  Receive Date: 20130305
  Receipt Date: 20130305
  Transmission Date: 20140127
  Serious: No
  Sender: FDA-Public Use
  Company Number: US-BAYER-2013-025641

PATIENT
  Age: 80 Year
  Sex: Female
  Weight: 90.7 kg

DRUGS (4)
  1. ALEVE CAPLET/TABLET,MIDOL EXTENDED RELIEF CAPLET [Suspect]
     Dosage: 1 DF, QD
     Route: 048
     Dates: start: 2010
  2. WATER PILL [Concomitant]
  3. MAGNESIUM [Concomitant]
  4. THYROID MEDICATION [Concomitant]

REACTIONS (2)
  - Malaise [Not Recovered/Not Resolved]
  - Incorrect drug administration duration [None]
